FAERS Safety Report 7860751-3 (Version None)
Quarter: 2011Q4

REPORT INFORMATION
  Report Type: 
  Country: None (occurrence: None)
  Receive Date: 20111027
  Receipt Date: 20111017
  Transmission Date: 20120403
  Serious: Yes (Hospitalization)
  Sender: FDA-Public Use
  Company Number: US-BAYER-2011-068402

PATIENT
  Age: 52 Year
  Sex: Female
  Weight: 65 kg

DRUGS (7)
  1. TPN [Concomitant]
     Dosage: UNK
     Dates: start: 20060101, end: 20100101
  2. ASTELIN [Concomitant]
     Dosage: UNK
     Route: 045
     Dates: start: 20090829
  3. LIPITOR [Concomitant]
     Dosage: UNK
     Dates: start: 20040101, end: 20100101
  4. YAZ [Suspect]
     Indication: HORMONE REPLACEMENT THERAPY
     Dosage: UNK
     Dates: start: 20090501, end: 20090901
  5. AMITIZA [Concomitant]
     Dosage: 8 UNK, UNK
     Dates: start: 20090628
  6. MILK THISTLE [Concomitant]
     Dosage: UNK
     Dates: start: 20050101
  7. MIRALAX [Concomitant]

REACTIONS (3)
  - INJURY [None]
  - THROMBOSIS [None]
  - DEEP VEIN THROMBOSIS [None]
